FAERS Safety Report 14968538 (Version 1)
Quarter: 2018Q2

REPORT INFORMATION
  Report Type: Spontaneous
  Country: US (occurrence: US)
  Receive Date: 20180511
  Receipt Date: 20180511
  Transmission Date: 20180711
  Serious: Yes (Hospitalization)
  Sender: FDA-Public Use
  Company Number: None

PATIENT
  Age: 74 Year
  Sex: Male
  Weight: 80 kg

DRUGS (11)
  1. HEPARIN [Concomitant]
     Active Substance: HEPARIN SODIUM
     Dates: start: 20180405, end: 20180430
  2. BACLOFEN. [Concomitant]
     Active Substance: BACLOFEN
     Dates: start: 20171226, end: 20180511
  3. MELATONIN [Concomitant]
     Active Substance: MELATONIN
     Dates: start: 20160216, end: 20180425
  4. ASPIRIN. [Concomitant]
     Active Substance: ASPIRIN
     Dates: start: 20180226, end: 20180511
  5. ZOLPIDEM [Concomitant]
     Active Substance: ZOLPIDEM\ZOLPIDEM TARTRATE
     Dates: start: 20180329, end: 20180425
  6. TRAMADOL. [Concomitant]
     Active Substance: TRAMADOL
     Dates: start: 20180308, end: 20180425
  7. LOSARTAN. [Concomitant]
     Active Substance: LOSARTAN
     Dates: start: 20180122, end: 20180511
  8. ERTAPENEM. [Suspect]
     Active Substance: ERTAPENEM SODIUM
     Indication: OSTEOMYELITIS
     Dosage: ?          OTHER FREQUENCY:EVERY 24 HOURS;?
     Route: 042
     Dates: start: 20180323, end: 20180417
  9. GABAPENTIN. [Concomitant]
     Active Substance: GABAPENTIN
     Dates: start: 20180206, end: 20180425
  10. VENLAFAXINE [Concomitant]
     Active Substance: VENLAFAXINE HYDROCHLORIDE
     Dates: start: 20171226, end: 20180511
  11. SIMVASTATIN. [Concomitant]
     Active Substance: SIMVASTATIN
     Dates: start: 20171226, end: 20180511

REACTIONS (2)
  - Hallucination, visual [None]
  - Confusional state [None]

NARRATIVE: CASE EVENT DATE: 20180417
